FAERS Safety Report 7964541 (Version 3)
Quarter: 2018Q4

REPORT INFORMATION
  Report Type: Spontaneous
  Country: ES (occurrence: ES)
  Receive Date: 20110527
  Receipt Date: 20181221
  Transmission Date: 20190205
  Serious: Yes (Other)
  Sender: FDA-Public Use
  Company Number: ES-PFIZER INC-2011111090

PATIENT
  Age: 63 Year
  Sex: Male

DRUGS (1)
  1. VFEND [Suspect]
     Active Substance: VORICONAZOLE
     Indication: ANTIFUNGAL PROPHYLAXIS
     Dosage: 100 MG, 2X/DAY
     Route: 048
     Dates: start: 201004, end: 201007

REACTIONS (1)
  - Pseudoporphyria [Recovered/Resolved]

NARRATIVE: CASE EVENT DATE: 201005
